FAERS Safety Report 6504258-4 (Version None)
Quarter: 2009Q4

REPORT INFORMATION
  Report Type: 
  Country: None (occurrence: None)
  Receive Date: 20091217
  Receipt Date: 20090706
  Transmission Date: 20100525
  Serious: No
  Sender: FDA-Public Use
  Company Number: US-ABBOTT-09P-163-0583856-00

PATIENT
  Sex: Female

DRUGS (9)
  1. HYTRIN [Suspect]
     Indication: HYPERTENSION
     Dates: start: 20090601, end: 20090627
  2. HYTRIN [Suspect]
     Dates: start: 20090627, end: 20090701
  3. HYTRIN [Suspect]
     Dates: start: 20090702
  4. DIOVAN [Concomitant]
     Indication: HYPERTENSION
  5. LASIX [Concomitant]
     Indication: HYPERTENSION
  6. CATAPRES [Concomitant]
     Indication: HYPERTENSION
  7. TOPROL-XL [Concomitant]
     Indication: HYPERTENSION
  8. LANTUS [Concomitant]
     Indication: DIABETES MELLITUS
  9. HUMALOG [Concomitant]
     Indication: DIABETES MELLITUS

REACTIONS (7)
  - BLOOD PRESSURE INCREASED [None]
  - DIZZINESS [None]
  - DRUG DOSE OMISSION [None]
  - FATIGUE [None]
  - HEADACHE [None]
  - NAUSEA [None]
  - VISION BLURRED [None]
